FAERS Safety Report 8490472-8 (Version None)
Quarter: 2012Q3

REPORT INFORMATION
  Report Type: 
  Country: None (occurrence: None)
  Receive Date: 20120705
  Receipt Date: 20120626
  Transmission Date: 20120928
  Serious: Yes (Death, Hospitalization, Other)
  Sender: FDA-Public Use
  Company Number: JP-CELGENEUS-087-50794-12070078

PATIENT
  Sex: Male
  Weight: 63 kg

DRUGS (71)
  1. VIDAZA [Suspect]
     Dosage: 75 MILLIGRAM
     Route: 041
     Dates: start: 20111114, end: 20111115
  2. LASIX [Concomitant]
     Route: 065
     Dates: start: 20111117, end: 20120330
  3. OXYCODONE HYDROCHLORIDE [Concomitant]
     Route: 065
     Dates: start: 20120111, end: 20120219
  4. PRODIF [Concomitant]
     Route: 065
     Dates: start: 20111109, end: 20111116
  5. SOLU-CORTEF [Concomitant]
     Route: 065
     Dates: start: 20111122, end: 20111128
  6. NAVOBAN [Concomitant]
     Route: 065
     Dates: start: 20111114, end: 20111115
  7. NAVOBAN [Concomitant]
     Route: 065
     Dates: start: 20120104, end: 20120110
  8. DIHYDROCODEINE PHOSPHATE [Concomitant]
     Route: 065
     Dates: start: 20120321, end: 20120331
  9. MUCOSOLVAN L [Concomitant]
     Route: 065
     Dates: start: 20120316, end: 20120330
  10. EXJADE [Concomitant]
     Route: 065
     Dates: start: 20120130, end: 20120212
  11. OXYCODONE HYDROCHLORIDE [Concomitant]
     Route: 065
     Dates: start: 20111122
  12. TPN ELECTROLYTES IN PLASTIC CONTAINER [Concomitant]
     Route: 065
     Dates: start: 20111116, end: 20111121
  13. CEFTAZIDIME [Concomitant]
     Route: 065
     Dates: start: 20111208, end: 20111219
  14. TRANSAMINE CAP [Concomitant]
     Route: 065
     Dates: start: 20120113, end: 20120202
  15. NAVOBAN [Concomitant]
     Route: 065
     Dates: start: 20120312, end: 20120312
  16. METHYLPREDNISOLONE SODIUM SUCCINATE [Concomitant]
     Route: 065
     Dates: start: 20120328, end: 20120331
  17. OXYGEN [Concomitant]
     Indication: CARDIAC FAILURE CHRONIC
     Route: 055
     Dates: start: 20111209, end: 20111209
  18. PROMACTA [Concomitant]
     Route: 065
     Dates: end: 20120330
  19. FUNGIZONE [Concomitant]
     Route: 065
     Dates: end: 20120330
  20. CARVEDILOL [Concomitant]
     Route: 065
     Dates: end: 20120330
  21. KALIMATE [Concomitant]
     Route: 065
     Dates: start: 20111211, end: 20120330
  22. PRODIF [Concomitant]
     Route: 065
     Dates: start: 20111201, end: 20120104
  23. VANCOMYCIN HYDROCHLORIDE [Concomitant]
     Route: 065
     Dates: start: 20111114, end: 20111122
  24. ELINEOPA [Concomitant]
     Route: 065
     Dates: start: 20120317, end: 20120331
  25. MINOCYCLINE HYDROCHLORIDE [Concomitant]
     Route: 065
     Dates: start: 20111208, end: 20111216
  26. ADONA [Concomitant]
     Route: 065
     Dates: start: 20111210, end: 20111218
  27. TRANSAMINE CAP [Concomitant]
     Route: 065
     Dates: start: 20111214, end: 20111218
  28. NAVOBAN [Concomitant]
     Route: 065
     Dates: start: 20111110, end: 20111111
  29. WHOLE BLOOD [Concomitant]
     Indication: CARDIAC FAILURE CHRONIC
     Route: 041
     Dates: start: 20111209, end: 20111209
  30. POLLAKISU [Concomitant]
     Route: 065
     Dates: end: 20111207
  31. POLYMYXIN B SULFATE [Concomitant]
     Route: 065
     Dates: end: 20120330
  32. FENTANYL CITRATE [Concomitant]
     Route: 065
     Dates: start: 20111128, end: 20111201
  33. VENILON [Concomitant]
     Route: 065
     Dates: start: 20111114, end: 20111116
  34. TPN ELECTROLYTES IN PLASTIC CONTAINER [Concomitant]
     Route: 065
     Dates: start: 20111219, end: 20120106
  35. NEUTROGIN [Concomitant]
     Route: 065
     Dates: start: 20111116, end: 20111117
  36. FUNGUARD [Concomitant]
     Route: 065
     Dates: start: 20111116, end: 20111125
  37. ZOSYN [Concomitant]
     Route: 065
     Dates: start: 20111116, end: 20111124
  38. ASPARA POTASSIUM [Concomitant]
     Route: 065
     Dates: start: 20111125, end: 20111128
  39. ADONA [Concomitant]
     Route: 065
     Dates: start: 20120113, end: 20120202
  40. DAIKENCHUTO [Concomitant]
     Route: 065
     Dates: start: 20120213, end: 20120330
  41. CEFEPIME HYDROCHLORIDE [Concomitant]
     Route: 065
     Dates: start: 20110212, end: 20120220
  42. VIDAZA [Suspect]
     Dosage: 100 MILLIGRAM
     Route: 041
     Dates: start: 20120206, end: 20120210
  43. VIDAZA [Suspect]
     Dosage: 100 MILLIGRAM
     Route: 041
     Dates: start: 20120312, end: 20120312
  44. FENTANYL CITRATE [Concomitant]
     Route: 065
     Dates: start: 20120113, end: 20120201
  45. ZOSYN [Concomitant]
     Route: 065
     Dates: start: 20120319, end: 20120326
  46. ELINEOPA [Concomitant]
     Route: 065
     Dates: start: 20111122, end: 20111218
  47. FIRSTCIN [Concomitant]
     Route: 065
     Dates: start: 20111201, end: 20111205
  48. NAVOBAN [Concomitant]
     Route: 065
     Dates: start: 20111209, end: 20111214
  49. SULFAMETHOXAZOLE AND TRIMETHOPRIM [Concomitant]
     Route: 065
     Dates: start: 20120314, end: 20120328
  50. VENOGLOBULIN [Concomitant]
     Route: 065
     Dates: start: 20120314, end: 20120316
  51. VIDAZA [Suspect]
     Indication: MYELODYSPLASTIC SYNDROME
     Dosage: 75 MILLIGRAM
     Route: 041
     Dates: start: 20111110, end: 20111111
  52. VIDAZA [Suspect]
     Dosage: 100 MILLIGRAM
     Route: 041
     Dates: start: 20120330, end: 20120330
  53. POLLAKISU [Concomitant]
     Route: 065
     Dates: start: 20120120, end: 20120330
  54. CEFAZOLIN SODIUM [Concomitant]
     Route: 065
     Dates: end: 20120330
  55. PROCTOSEDYL [Concomitant]
     Route: 065
     Dates: start: 20111117, end: 20120330
  56. NAVOBAN [Concomitant]
     Route: 065
     Dates: start: 20120330, end: 20120330
  57. VIDAZA [Suspect]
     Dosage: 75 MILLIGRAM
     Route: 041
     Dates: start: 20111209, end: 20111214
  58. VIDAZA [Suspect]
     Dosage: 100 MILLIGRAM
     Route: 041
     Dates: start: 20120104, end: 20120109
  59. KALIMATE [Concomitant]
     Route: 065
     Dates: start: 20111102, end: 20111113
  60. OMEGACIN [Concomitant]
     Route: 065
     Dates: start: 20111111, end: 20111116
  61. VANCOMYCIN HYDROCHLORIDE [Concomitant]
     Route: 065
     Dates: start: 20120315, end: 20120325
  62. DORIPENEM MONOHYDRATE [Concomitant]
     Route: 065
     Dates: start: 20120314, end: 20120319
  63. MAGMITT [Concomitant]
     Route: 065
     Dates: start: 20111110, end: 20120330
  64. ALLOPURINOL [Concomitant]
     Route: 065
     Dates: end: 20120330
  65. CIPROFLOXACIN HYDROCHLORIDE [Concomitant]
     Route: 065
     Dates: start: 20111122, end: 20111201
  66. PREDNISOLONE SODIUM SUCCINATE INJ [Concomitant]
     Route: 065
     Dates: start: 20111129, end: 20120111
  67. PREDNISOLONE SODIUM SUCCINATE INJ [Concomitant]
     Route: 065
     Dates: start: 20120112, end: 20120330
  68. DORIPENEM MONOHYDRATE [Concomitant]
     Route: 065
     Dates: start: 20120220, end: 20120302
  69. CIPROFLOXACIN HCL [Concomitant]
     Route: 065
     Dates: start: 20120326, end: 20120328
  70. MEROPENEM [Concomitant]
     Route: 065
     Dates: start: 20120328, end: 20120331
  71. MAGMITT [Concomitant]
     Route: 065
     Dates: start: 20120120, end: 20120330

REACTIONS (7)
  - ANAL FISSURE [None]
  - CONSTIPATION [None]
  - WHITE BLOOD CELL COUNT INCREASED [None]
  - MUSCLE HAEMORRHAGE [None]
  - PLATELET COUNT DECREASED [None]
  - PNEUMONIA [None]
  - ANAEMIA [None]
